FAERS Safety Report 4398130-6 (Version None)
Quarter: 2004Q3

REPORT INFORMATION
  Report Type: 
  Country: None (occurrence: None)
  Receive Date: 20040715
  Receipt Date: 20040602
  Transmission Date: 20050211
  Serious: Yes (Other)
  Sender: FDA-Public Use
  Company Number: PHBS2004AT07323

PATIENT
  Sex: 0

DRUGS (1)
  1. TEGRETOL [Suspect]
     Indication: EPILEPSY
     Route: 065

REACTIONS (4)
  - GRAND MAL CONVULSION [None]
  - OSTEOPOROSIS [None]
  - SPINAL FRACTURE [None]
  - SURGERY [None]
